FAERS Safety Report 10680548 (Version 2)
Quarter: 2015Q4

REPORT INFORMATION
  Report Type: Spontaneous
  Country: US (occurrence: US)
  Receive Date: 20141229
  Receipt Date: 20151228
  Transmission Date: 20160304
  Serious: Yes (Hospitalization)
  Sender: FDA-Public Use
  Company Number: US-SA-2014SA031824

PATIENT
  Age: 60 Year
  Sex: Male

DRUGS (10)
  1. PLETAL [Concomitant]
     Active Substance: CILOSTAZOL
  2. CARVEDILOL. [Concomitant]
     Active Substance: CARVEDILOL
  3. ALLOPURINOL. [Concomitant]
     Active Substance: ALLOPURINOL
  4. OXAPROZIN. [Concomitant]
     Active Substance: OXAPROZIN
  5. JANUVIA [Concomitant]
     Active Substance: SITAGLIPTIN PHOSPHATE
  6. CRESTOR [Concomitant]
     Active Substance: ROSUVASTATIN CALCIUM
  7. VITAMIN D [Concomitant]
     Active Substance: CHOLECALCIFEROL
  8. PLAVIX [Suspect]
     Active Substance: CLOPIDOGREL BISULFATE
     Indication: PRODUCT USED FOR UNKNOWN INDICATION
     Route: 048
     Dates: start: 20110303, end: 20110903
  9. LYRICA [Concomitant]
     Active Substance: PREGABALIN
  10. SPIRIVA [Concomitant]
     Active Substance: TIOTROPIUM BROMIDE MONOHYDRATE

REACTIONS (1)
  - Gastrointestinal haemorrhage [Recovered/Resolved]

NARRATIVE: CASE EVENT DATE: 20110624
